FAERS Safety Report 14007694 (Version 2)
Quarter: 2019Q1

REPORT INFORMATION
  Report Type: Report from Study
  Country: JP (occurrence: JP)
  Receive Date: 20170925
  Receipt Date: 20190312
  Transmission Date: 20190417
  Serious: Yes (Life-Threatening, Hospitalization, Other)
  Sender: FDA-Public Use
  Company Number: JP-CLINIGEN GROUP PLC/ CLINIGEN HEALTHCARE LTD-JP-CLGN-17-00306

PATIENT
  Age: 73 Year
  Sex: Male
  Weight: 56.9 kg

DRUGS (17)
  1. SAVENE [Suspect]
     Active Substance: DEXRAZOXANE
     Indication: INFUSION SITE EXTRAVASATION
     Route: 041
     Dates: start: 20160422, end: 20160423
  2. DECADRON [Suspect]
     Active Substance: DEXAMETHASONE
     Indication: PLASMA CELL LEUKAEMIA
     Route: 042
     Dates: start: 20160422, end: 20160425
  3. GLUCOSE [Concomitant]
     Active Substance: DEXTROSE
     Indication: MEDICATION DILUTION
     Route: 041
     Dates: start: 20160422, end: 20160424
  4. HARNAL [Concomitant]
     Active Substance: TAMSULOSIN HYDROCHLORIDE
     Indication: PRODUCT USED FOR UNKNOWN INDICATION
     Route: 048
  5. VALSARTAN. [Suspect]
     Active Substance: VALSARTAN
     Indication: PRODUCT USED FOR UNKNOWN INDICATION
     Route: 048
     Dates: end: 20160514
  6. AMLODIN [Suspect]
     Active Substance: AMLODIPINE BESYLATE
     Indication: PRODUCT USED FOR UNKNOWN INDICATION
     Route: 048
     Dates: end: 20160514
  7. DECADRON [Suspect]
     Active Substance: DEXAMETHASONE
     Route: 042
     Dates: start: 20160430, end: 20160503
  8. VELCADE [Suspect]
     Active Substance: BORTEZOMIB
     Indication: PLASMA CELL LEUKAEMIA
     Dates: end: 20160425
  9. VELCADE [Suspect]
     Active Substance: BORTEZOMIB
     Dates: start: 20160502, end: 20160502
  10. ADRIACIN [Suspect]
     Active Substance: DOXORUBICIN HYDROCHLORIDE
     Route: 042
     Dates: start: 20160425, end: 20160425
  11. SOLU-CORTEF [Concomitant]
     Active Substance: HYDROCORTISONE SODIUM SUCCINATE
     Indication: INFUSION SITE EXTRAVASATION
     Route: 058
     Dates: start: 20160422, end: 20160422
  12. RASURITEK [Concomitant]
     Active Substance: RASBURICASE
     Indication: PROPHYLAXIS
     Route: 041
     Dates: end: 20160422
  13. SAVENE [Suspect]
     Active Substance: DEXRAZOXANE
     Route: 041
     Dates: start: 20160424, end: 20160424
  14. DERMOVATE [Concomitant]
     Active Substance: CLOBETASOL
     Indication: INFUSION SITE EXTRAVASATION
     Route: 003
     Dates: start: 20160422, end: 20160501
  15. LASIX [Concomitant]
     Active Substance: FUROSEMIDE
     Indication: PROPHYLAXIS
     Dates: start: 20160423, end: 20160510
  16. ADRIACIN [Suspect]
     Active Substance: DOXORUBICIN HYDROCHLORIDE
     Indication: PLASMA CELL LEUKAEMIA
     Route: 042
     Dates: start: 20160422, end: 20160422
  17. VELCADE [Suspect]
     Active Substance: BORTEZOMIB
     Dates: start: 20160429, end: 20160429

REACTIONS (6)
  - Liver disorder [Recovered/Resolved]
  - Bone marrow failure [Recovered/Resolved]
  - Herpes zoster [Recovered/Resolved]
  - Device related infection [Recovered/Resolved]
  - Rash [Recovered/Resolved]
  - Oedema peripheral [Recovered/Resolved]

NARRATIVE: CASE EVENT DATE: 20160425
